FAERS Safety Report 11972613 (Version 2)
Quarter: 2016Q2

REPORT INFORMATION
  Report Type: Report from Study
  Country: DE (occurrence: TR)
  Receive Date: 20160128
  Receipt Date: 20160401
  Transmission Date: 20160815
  Serious: Yes (Death, Hospitalization)
  Sender: FDA-Public Use
  Company Number: DE-ACTELION-A-NJ2016-130665

PATIENT
  Age: 4 Year
  Sex: Female
  Weight: 19 kg

DRUGS (2)
  1. VENTAVIS [Suspect]
     Active Substance: ILOPROST
     Indication: PRODUCT USED FOR UNKNOWN INDICATION
     Dosage: 9X1
     Route: 055
     Dates: start: 20160120, end: 20160121
  2. TRACLEER [Concomitant]
     Active Substance: BOSENTAN
     Dosage: UNK
     Dates: start: 20160121, end: 20160121

REACTIONS (5)
  - Congenital aplastic anaemia [Fatal]
  - Lung infection [Fatal]
  - Thrombocytopenia [Fatal]
  - Product use issue [Unknown]
  - Pulmonary hypertensive crisis [Fatal]

NARRATIVE: CASE EVENT DATE: 20160121
